FAERS Safety Report 17601057 (Version 2)
Quarter: 2020Q2

REPORT INFORMATION
  Report Type: Report from Study
  Country: MX (occurrence: MX)
  Receive Date: 20200330
  Receipt Date: 20200410
  Transmission Date: 20200713
  Serious: Yes (Hospitalization, Other)
  Sender: FDA-Public Use
  Company Number: NVSC2020MX086874

PATIENT
  Sex: Female
  Weight: 53 kg

DRUGS (6)
  1. GALVUS MET [Suspect]
     Active Substance: METFORMIN HYDROCHLORIDE\VILDAGLIPTIN
     Indication: DIABETES MELLITUS
     Dosage: 2 DF, QD (500/50 MG) (1 IN THE MORNING AND 1 IN THE NIGHT)
     Route: 048
     Dates: start: 2001
  2. PREGABALIN. [Concomitant]
     Active Substance: PREGABALIN
     Indication: SPINAL CORD DISORDER
     Dosage: 75 MG (MORNING AND NIGHT)
     Route: 048
  3. EXFORGE [Suspect]
     Active Substance: AMLODIPINE BESYLATE\VALSARTAN
     Indication: HYPERTENSION
     Dosage: 1 DF (5/160 MG), QD (STARTED APPROXIMATELY 15 YEARS AGO)
     Route: 048
  4. DIABION [Concomitant]
     Indication: MULTI-VITAMIN DEFICIENCY
     Dosage: 1 OT, QD
     Route: 048
  5. GALVUS MET [Suspect]
     Active Substance: METFORMIN HYDROCHLORIDE\VILDAGLIPTIN
     Dosage: 2 DF, QD ((50/850 MG),(MORNING AND NIGHT))
     Route: 048
  6. OMEGA-3 ACIDS [Concomitant]
     Active Substance: OMEGA-3 FATTY ACIDS
     Indication: ARTHROPATHY
     Dosage: 1 DF, QD
     Route: 048

REACTIONS (11)
  - Appendicitis [Recovered/Resolved]
  - Nasal congestion [Not Recovered/Not Resolved]
  - Pain [Recovered/Resolved]
  - Hiatus hernia [Not Recovered/Not Resolved]
  - Oral infection [Recovered/Resolved with Sequelae]
  - Constipation [Unknown]
  - Dry throat [Recovered/Resolved]
  - Dysphonia [Not Recovered/Not Resolved]
  - Productive cough [Not Recovered/Not Resolved]
  - Throat irritation [Recovered/Resolved]
  - Fluid imbalance [Unknown]
